FAERS Safety Report 10874016 (Version 3)
Quarter: 2015Q1

REPORT INFORMATION
  Report Type: Spontaneous
  Country: US (occurrence: None)
  Receive Date: 20150224
  Receipt Date: 20150331
  Transmission Date: 20150721
  Serious: Yes (Hospitalization)
  Sender: FDA-Public Use
  Company Number: CIO15010912

PATIENT
  Age: 81 Year
  Sex: Male
  Weight: 88.9 kg

DRUGS (5)
  1. VITAMIN B12 NOS (VITAMIN B12 NOS) [Concomitant]
  2. PEPTO-BISMOL ORIGINAL FORMULA [Suspect]
     Active Substance: BISMUTH SUBSALICYLATE
     Indication: DIARRHOEA
     Dosage: 1 CAPFUL, A TOTAL OF 4 DOSES
     Route: 048
     Dates: start: 20150210, end: 20150212
  3. FOLIC ACID (FOLIC ACID) [Concomitant]
     Active Substance: FOLIC ACID
  4. HYPERTENSION MEDICINES [Concomitant]
  5. VITAMIN D NOS (VITAMIN D NOS) [Concomitant]

REACTIONS (7)
  - Haemorrhoidal haemorrhage [None]
  - Abdominal discomfort [None]
  - Haematochezia [None]
  - Abdominal pain upper [None]
  - Diarrhoea [None]
  - Faeces discoloured [None]
  - Muscle spasms [None]

NARRATIVE: CASE EVENT DATE: 201502
